FAERS Safety Report 6530813-1 (Version None)
Quarter: 2010Q1

REPORT INFORMATION
  Report Type: 
  Country: None (occurrence: None)
  Receive Date: 20100108
  Receipt Date: 20090312
  Transmission Date: 20100710
  Serious: No
  Sender: FDA-Public Use
  Company Number: A0773039A

PATIENT
  Sex: Male

DRUGS (3)
  1. LOVAZA [Suspect]
     Indication: DRUG USE FOR UNKNOWN INDICATION
     Dosage: 2G TWICE PER DAY
     Route: 048
     Dates: start: 20090226
  2. METHOCARBAMOL [Suspect]
     Indication: RHEUMATOID ARTHRITIS
     Dosage: 2000MG PER DAY
     Route: 048
  3. UNKNOWN [Concomitant]

REACTIONS (2)
  - ARTHRITIS [None]
  - CONSTIPATION [None]
